FAERS Safety Report 6283190-8 (Version None)
Quarter: 2009Q3

REPORT INFORMATION
  Report Type: 
  Country: None (occurrence: None)
  Receive Date: 20090724
  Receipt Date: 20090717
  Transmission Date: 20100115
  Serious: Yes (Hospitalization)
  Sender: FDA-Public Use
  Company Number: B0585376A

PATIENT
  Age: 68 Year
  Sex: Male

DRUGS (7)
  1. AMOXICILLIN [Suspect]
     Dosage: 1TAB PER DAY
     Route: 048
  2. CARVEDILOL PHOSPHATE [Concomitant]
  3. ZOFENOPRIL [Concomitant]
  4. TICLOPIDINE HCL [Concomitant]
  5. ASPIRIN [Concomitant]
  6. HYPOGLYCEMIC AGENT [Concomitant]
  7. ANTI-HYPERLIPIDEMIC [Concomitant]

REACTIONS (7)
  - ANAPHYLACTIC REACTION [None]
  - CHEST DISCOMFORT [None]
  - CHEST PAIN [None]
  - HYPOTENSION [None]
  - LOSS OF CONSCIOUSNESS [None]
  - PRURITUS [None]
  - THROAT TIGHTNESS [None]
